FAERS Safety Report 6046934-6 (Version None)
Quarter: 2009Q1

REPORT INFORMATION
  Report Type: 
  Country: None (occurrence: None)
  Receive Date: 20090122
  Receipt Date: 20090105
  Transmission Date: 20090719
  Serious: Yes (Other)
  Sender: FDA-Public Use
  Company Number: US-PFIZER INC-2009152094

PATIENT
  Sex: Male
  Weight: 68.038 kg

DRUGS (3)
  1. CELEBREX [Suspect]
     Indication: MUSCULOSKELETAL PAIN
     Dates: start: 20090103, end: 20090104
  2. IBUPROFEN [Suspect]
     Indication: MUSCULOSKELETAL PAIN
     Dosage: UNK
     Dates: end: 20090101
  3. ALEVE [Concomitant]

REACTIONS (3)
  - ABDOMINAL PAIN UPPER [None]
  - ANGIOEDEMA [None]
  - PALATAL OEDEMA [None]
